FAERS Safety Report 4686233-8 (Version None)
Quarter: 2005Q2

REPORT INFORMATION
  Report Type: 
  Country: None (occurrence: None)
  Receive Date: 20050609
  Receipt Date: 20050531
  Transmission Date: 20051028
  Serious: Yes (Other)
  Sender: FDA-Public Use
  Company Number: CA-GLAXOSMITHKLINE-A0561510A

PATIENT
  Age: 57 Year
  Sex: Female

DRUGS (6)
  1. PAROXETINE HCL [Suspect]
     Indication: DRUG USE FOR UNKNOWN INDICATION
     Dosage: 20MG PER DAY
     Route: 048
  2. CALCIUM GLUCONATE [Concomitant]
  3. DIDROCAL [Concomitant]
  4. ESTRADERM [Concomitant]
  5. MONOCOR [Concomitant]
  6. VITAMINS [Concomitant]

REACTIONS (8)
  - ABNORMAL DREAMS [None]
  - ANXIETY [None]
  - DEPRESSION [None]
  - FATIGUE [None]
  - INSOMNIA [None]
  - PORPHYRIA [None]
  - SUICIDAL IDEATION [None]
  - THINKING ABNORMAL [None]
